FAERS Safety Report 24079817 (Version 1)
Quarter: 2024Q3

REPORT INFORMATION
  Report Type: Spontaneous
  Country: US (occurrence: US)
  Receive Date: 20240711
  Receipt Date: 20240711
  Transmission Date: 20241017
  Serious: Yes (Death)
  Sender: NOVARTIS
  Company Number: US-002147023-NVSC2024US142894

PATIENT
  Sex: Female

DRUGS (11)
  1. LETROZOLE [Suspect]
     Active Substance: LETROZOLE
     Indication: Breast cancer
     Dosage: UNK
     Route: 065
     Dates: start: 20190313, end: 20200128
  2. PALBOCICLIB [Suspect]
     Active Substance: PALBOCICLIB
     Indication: Breast cancer
     Dosage: 125 MG, QD
     Route: 065
     Dates: start: 20190315, end: 20190405
  3. PALBOCICLIB [Suspect]
     Active Substance: PALBOCICLIB
     Dosage: 125 MG, QD
     Route: 065
     Dates: start: 20190410, end: 20190516
  4. PALBOCICLIB [Suspect]
     Active Substance: PALBOCICLIB
     Dosage: 100 MG, QD
     Route: 065
     Dates: start: 20190523, end: 20190613
  5. PALBOCICLIB [Suspect]
     Active Substance: PALBOCICLIB
     Dosage: 100 MG, QD
     Route: 065
     Dates: start: 20190619, end: 20190710
  6. PALBOCICLIB [Suspect]
     Active Substance: PALBOCICLIB
     Dosage: 100 MG, QD
     Route: 065
     Dates: start: 20190722, end: 20190812
  7. PALBOCICLIB [Suspect]
     Active Substance: PALBOCICLIB
     Dosage: 75 MG, QD
     Route: 065
     Dates: start: 20190820, end: 20190910
  8. PALBOCICLIB [Suspect]
     Active Substance: PALBOCICLIB
     Dosage: 75 MG, QD
     Route: 065
     Dates: start: 20190917, end: 20191008
  9. PALBOCICLIB [Suspect]
     Active Substance: PALBOCICLIB
     Dosage: 75 MG, QD
     Route: 065
     Dates: start: 20191016, end: 20191106
  10. PALBOCICLIB [Suspect]
     Active Substance: PALBOCICLIB
     Dosage: 75 MG, QD
     Route: 065
     Dates: start: 20191213, end: 20200103
  11. PALBOCICLIB [Suspect]
     Active Substance: PALBOCICLIB
     Dosage: 75 MG, QD
     Route: 065
     Dates: start: 20200110, end: 20200128

REACTIONS (3)
  - Breast cancer [Fatal]
  - Malignant neoplasm progression [Fatal]
  - Spontaneous bacterial peritonitis [Fatal]

NARRATIVE: CASE EVENT DATE: 20201001
